FAERS Safety Report 6393736-7 (Version None)
Quarter: 2009Q4

REPORT INFORMATION
  Report Type: 
  Country: None (occurrence: None)
  Receive Date: 20091008
  Receipt Date: 20090929
  Transmission Date: 20100525
  Serious: Yes (Hospitalization)
  Sender: FDA-Public Use
  Company Number: JP-ASTRAZENECA-2009SE17094

PATIENT
  Age: 67 Year
  Sex: Male
  Weight: 72 kg

DRUGS (14)
  1. PLACEBO [Suspect]
     Indication: PROSTATE CANCER
     Route: 048
     Dates: start: 20090413
  2. ZOLADEX [Suspect]
     Indication: PROSTATE CANCER
     Dosage: DOSE UNKNOWN
     Route: 058
     Dates: start: 20031024
  3. CRESTOR [Suspect]
     Indication: HYPERLIPIDAEMIA
     Route: 048
     Dates: start: 20080417
  4. PREDONINE [Suspect]
     Indication: PROSTATE CANCER
     Route: 048
     Dates: start: 20090327
  5. CALBLOCK [Suspect]
     Indication: HYPERTENSION
     Route: 048
     Dates: start: 20061012
  6. PREMINENT [Suspect]
     Indication: HYPERTENSION
     Route: 048
     Dates: start: 20081002
  7. ARTIST [Suspect]
     Indication: HYPERTENSION
     Route: 048
     Dates: start: 20080417
  8. GASTER [Suspect]
     Indication: GASTRITIS PROPHYLAXIS
     Route: 048
     Dates: start: 20040804
  9. HARNAL D [Suspect]
     Route: 048
     Dates: start: 20090706
  10. ASPIRIN [Concomitant]
     Dosage: NUMBER OF SEPARATE DOSAGES UNKNOWN
     Route: 048
     Dates: start: 20040227
  11. SODIUM HYALURONATE [Concomitant]
     Dosage: NUMBER OF SEPARATE DOSAGES UNKNOWN
     Route: 039
     Dates: start: 20080515
  12. LIDOCAINE HYDROCHLORIDE [Concomitant]
     Dosage: NUMBER OF SEPARATE DOSAGES UNKNOWN
     Route: 039
     Dates: start: 20080515
  13. CELECOXIB [Concomitant]
     Dosage: NUMBER OF SEPARATE DOSAGES UNKNOWN
     Route: 048
     Dates: start: 20090115, end: 20090617
  14. TIZANIDINE HYDROCHLORIDE [Concomitant]
     Dosage: NUMBER OF SEPARATE DOSAGES UNKNOWN
     Route: 048
     Dates: start: 20090115, end: 20090617

REACTIONS (1)
  - INTERVERTEBRAL DISC PROTRUSION [None]
